FAERS Safety Report 7469391-1 (Version None)
Quarter: 2011Q2

REPORT INFORMATION
  Report Type: 
  Country: None (occurrence: None)
  Receive Date: 20110510
  Receipt Date: 20110504
  Transmission Date: 20111010
  Serious: Yes (Hospitalization)
  Sender: FDA-Public Use
  Company Number: FR-PFIZER INC-2011095368

PATIENT
  Age: 81 Year
  Sex: Female

DRUGS (11)
  1. KETUM [Concomitant]
     Dosage: UNK
     Route: 061
     Dates: end: 20110106
  2. ADVIL LIQUI-GELS [Suspect]
     Dosage: 400 MG PER DAY OCCASIONALLY (MAXIMUM 1 WEEK PER MONTH)
     Route: 048
     Dates: end: 20101231
  3. DAFALGAN [Concomitant]
     Dosage: 2 DF, 3X/DAY
     Route: 048
     Dates: end: 20101231
  4. FORLAX [Concomitant]
     Dosage: 10 G, 2X/DAY
     Route: 048
     Dates: end: 20110101
  5. LEXOMIL [Concomitant]
     Dosage: 0.5-0.75MG DAILY
     Route: 048
  6. NOCTRAN 10 [Concomitant]
     Dosage: 10 MG, 1X/DAY
     Route: 048
  7. INDAPAMIDE [Suspect]
     Dosage: 1.5 MG, 1X/DAY
     Route: 048
     Dates: end: 20101230
  8. KETOPROFEN [Suspect]
     Route: 048
  9. PANTOPRAZOLE [Concomitant]
     Dosage: 20 MG, 1X/DAY
     Route: 048
     Dates: end: 20110106
  10. FENOFIBRATE [Concomitant]
     Dosage: 200 MG, 1X/DAY
     Route: 048
     Dates: end: 20110106
  11. CELIPROLOL [Concomitant]
     Dosage: 200 MG, 1X/DAY
     Route: 048

REACTIONS (2)
  - HYPOKALAEMIA [None]
  - RENAL FAILURE ACUTE [None]
